APPROVED DRUG PRODUCT: IVRA
Active Ingredient: MELPHALAN HYDROCHLORIDE
Strength: EQ 90MG BASE/ML (EQ 90MG BASE/ML)
Dosage Form/Route: SOLUTION;INTRAVENOUS
Application: N217110 | Product #001
Applicant: APOTEX INC
Approved: Aug 18, 2023 | RLD: Yes | RS: Yes | Type: RX

PATENTS:
Patent 10537520 | Expires: Jun 29, 2036